FAERS Safety Report 10232098 (Version 1)
Quarter: 2014Q2

REPORT INFORMATION
  Report Type: Spontaneous
  Country: US (occurrence: US)
  Receive Date: 20140612
  Receipt Date: 20140612
  Transmission Date: 20141212
  Serious: No
  Sender: FDA-Public Use
  Company Number: US-BIOGENIDEC-2014BI050711

PATIENT
  Age: 69 Year
  Sex: Male

DRUGS (5)
  1. TECFIDERA [Suspect]
     Indication: MULTIPLE SCLEROSIS
     Route: 048
     Dates: start: 20140213
  2. ANAFRANIL [Concomitant]
  3. ASPIRIN [Concomitant]
  4. AVODART [Concomitant]
  5. COPAXONE [Concomitant]

REACTIONS (1)
  - Flatulence [Unknown]
